FAERS Safety Report 13767783 (Version 1)
Quarter: 2017Q3

REPORT INFORMATION
  Report Type: Spontaneous
  Country: US (occurrence: US)
  Receive Date: 20170719
  Receipt Date: 20170719
  Transmission Date: 20171127
  Serious: No
  Sender: FDA-Public Use
  Company Number: US-PFIZER INC-2017305399

PATIENT
  Sex: Female

DRUGS (1)
  1. METHOTREXATE SODIUM. [Suspect]
     Active Substance: METHOTREXATE SODIUM
     Dosage: 13.5 MG, WEEKLY

REACTIONS (7)
  - Gait disturbance [Unknown]
  - Arthropathy [Unknown]
  - Kyphosis [Unknown]
  - Synovitis [Unknown]
  - Joint warmth [Unknown]
  - Condition aggravated [Unknown]
  - Joint range of motion decreased [Unknown]
